FAERS Safety Report 4581064-1 (Version None)
Quarter: 2005Q1

REPORT INFORMATION
  Report Type: 
  Country: None (occurrence: None)
  Receive Date: 20050127
  Receipt Date: 20041115
  Transmission Date: 20050727
  Serious: No
  Sender: FDA-Public Use
  Company Number: US_0411108567

PATIENT
  Age: 20 Year
  Sex: Female

DRUGS (3)
  1. STRATTERA [Suspect]
     Indication: ATTENTION DEFICIT/HYPERACTIVITY DISORDER
     Dosage: 18 MG/1 DAY
     Dates: start: 20041109
  2. LEXAPRO [Concomitant]
  3. WELLBUTRIN [Concomitant]

REACTIONS (6)
  - DYSPNOEA [None]
  - IMPULSIVE BEHAVIOUR [None]
  - PALPITATIONS [None]
  - SKIN DISCOLOURATION [None]
  - THINKING ABNORMAL [None]
  - WHEEZING [None]
